FAERS Safety Report 6543139-7 (Version None)
Quarter: 2010Q1

REPORT INFORMATION
  Report Type: 
  Country: None (occurrence: None)
  Receive Date: 20100120
  Receipt Date: 20100113
  Transmission Date: 20100710
  Serious: Yes (Life-Threatening, Hospitalization, Other)
  Sender: FDA-Public Use
  Company Number: US-NOVOPROD-301441

PATIENT
  Sex: Male
  Weight: 98.866 kg

DRUGS (4)
  1. NOVOLOG [Suspect]
     Indication: TYPE 2 DIABETES MELLITUS
     Dosage: 25 IU, QD
     Route: 058
  2. LEVEMIR [Suspect]
     Indication: TYPE 2 DIABETES MELLITUS
     Dosage: 60 IU, BID (MORNING AND EVENING)
     Route: 058
     Dates: start: 20090601
  3. LISINOPRIL [Concomitant]
     Indication: HYPERTENSION
     Dosage: UNK
  4. FLOVENT [Concomitant]
     Indication: ASTHMA
     Dosage: UNK

REACTIONS (10)
  - ABDOMINAL PAIN [None]
  - BLOOD GLUCOSE DECREASED [None]
  - BLOOD GLUCOSE INCREASED [None]
  - BLOOD PRESSURE DECREASED [None]
  - CARDIAC ARREST [None]
  - DEVICE BREAKAGE [None]
  - DEVICE MALFUNCTION [None]
  - DIZZINESS [None]
  - HYPERHIDROSIS [None]
  - POLLAKIURIA [None]
